FAERS Safety Report 5498931-7 (Version None)
Quarter: 2007Q4

REPORT INFORMATION
  Report Type: 
  Country: None (occurrence: None)
  Receive Date: 20071026
  Receipt Date: 20070615
  Transmission Date: 20080405
  Serious: No
  Sender: FDA-Public Use
  Company Number: A0650250A

PATIENT
  Age: 69 Year
  Sex: Male
  Weight: 86.4 kg

DRUGS (6)
  1. ADVAIR DISKUS 100/50 [Suspect]
     Indication: ASTHMA
     Dosage: 1BLS TWICE PER DAY
     Route: 055
     Dates: start: 20060901, end: 20070313
  2. SYNTHROID [Concomitant]
  3. SOTALOL HYDROCHLORIDE [Concomitant]
  4. ASPIRIN [Concomitant]
  5. CLARITIN [Concomitant]
  6. BENADRYL [Concomitant]

REACTIONS (3)
  - ERYTHEMA [None]
  - FLUSHING [None]
  - SKIN WARM [None]
